FAERS Safety Report 10267455 (Version 2)
Quarter: 2014Q2

REPORT INFORMATION
  Report Type: Spontaneous
  Country: US (occurrence: US)
  Receive Date: 20140630
  Receipt Date: 20140630
  Transmission Date: 20141212
  Serious: Yes (Life-Threatening, Other)
  Sender: FDA-Public Use
  Company Number: US-DSJP-DSJ-2013-21106

PATIENT
  Sex: 0

DRUGS (13)
  1. HYDROMORPHONE HYDROCHLORIDE [Suspect]
     Indication: PAIN
     Dosage: EVERY
     Route: 037
  2. HYDROMORPHONE HYDROCHLORIDE [Suspect]
     Indication: PRODUCT USED FOR UNKNOWN INDICATION
     Dosage: EVERY
     Route: 065
  3. PRAVASTATIN SODIUM [Suspect]
     Indication: PRODUCT USED FOR UNKNOWN INDICATION
     Dosage: UNKNOWN     EVERY
     Route: 065
  4. BACLOFEN INTRATHECAL [Suspect]
     Indication: PAIN
     Dosage: EVERY
     Route: 037
  5. AMITRIPTYLINE [Suspect]
     Dosage: UNKNOWN     EVERY
     Route: 065
  6. WELCHOL [Suspect]
     Dosage: UNKNOWN     EVERY
     Route: 065
  7. ULTRAM [Suspect]
     Dosage: UNKNOWN     EVERY
     Route: 065
  8. PANTOPRAZOLE [Suspect]
     Dosage: UNKNOWN     EVERY
     Route: 065
  9. CYMBALTA [Suspect]
     Dosage: UNKNOWN     EVERY
     Route: 065
  10. NEURONTIN [Suspect]
     Dosage: UNKNOWN     EVERY
     Route: 065
  11. LISINOPRIL [Suspect]
     Dosage: UNKNOWN     EVERY
     Route: 065
  12. NORVASC [Suspect]
     Dosage: UNKNOWN     EVERY
     Route: 065
  13. BUPIVACAINE [Suspect]
     Dosage: EVERY
     Route: 065

REACTIONS (10)
  - Cardiac arrest [Unknown]
  - Overdose [Unknown]
  - Brain injury [Unknown]
  - Blindness [Unknown]
  - Respiratory arrest [Unknown]
  - Arthralgia [Unknown]
  - Back pain [Unknown]
  - Neck pain [Unknown]
  - Phantom pain [Unknown]
  - Cerebrovascular accident [Unknown]
